FAERS Safety Report 9645531 (Version 2)
Quarter: 2013Q4

REPORT INFORMATION
  Report Type: Spontaneous
  Country: ES (occurrence: ES)
  Receive Date: 20131025
  Receipt Date: 20131105
  Transmission Date: 20140711
  Serious: Yes (Other)
  Sender: FDA-Public Use
  Company Number: ES-ABBVIE-13P-144-1159239-00

PATIENT
  Age: 60 Year
  Sex: Female

DRUGS (2)
  1. FENOFIBRATE [Suspect]
     Indication: PRODUCT USED FOR UNKNOWN INDICATION
  2. RALOXIFENE [Suspect]
     Indication: PRODUCT USED FOR UNKNOWN INDICATION

REACTIONS (6)
  - Jaundice [Unknown]
  - Hepatotoxicity [Unknown]
  - Cholestasis [Unknown]
  - Hepatic necrosis [Unknown]
  - Cholestasis [Unknown]
  - Vanishing bile duct syndrome [Unknown]
